FAERS Safety Report 7682474-6 (Version None)
Quarter: 2011Q3

REPORT INFORMATION
  Report Type: 
  Country: None (occurrence: None)
  Receive Date: 20110815
  Receipt Date: 20110808
  Transmission Date: 20111222
  Serious: Yes (Disabling, Other)
  Sender: FDA-Public Use
  Company Number: US-CEPHALON-US017424

PATIENT
  Sex: Female
  Weight: 59 kg

DRUGS (1)
  1. PROVIGIL [Suspect]
     Indication: FATIGUE
     Route: 048

REACTIONS (5)
  - HERPES VIRUS INFECTION [None]
  - DEAFNESS [None]
  - VERTIGO [None]
  - TINNITUS [None]
  - NAUSEA [None]
